FAERS Safety Report 9270396 (Version 1)
Quarter: 2013Q2

REPORT INFORMATION
  Report Type: Spontaneous
  Country: US (occurrence: US)
  Receive Date: 20130503
  Receipt Date: 20130503
  Transmission Date: 20140414
  Serious: Yes (Hospitalization)
  Sender: FDA-Public Use
  Company Number: US-BAYER-2013-052420

PATIENT
  Age: 43 Year
  Sex: Female

DRUGS (12)
  1. YAZ [Suspect]
     Indication: CONTRACEPTION
     Dosage: UNK
     Dates: start: 20020714, end: 20100528
  2. YASMIN [Suspect]
     Dosage: UNK
     Dates: start: 20020714, end: 20100528
  3. PREDNISONE [Concomitant]
     Dosage: UNK
  4. IBUPROFEN [Concomitant]
     Dosage: UNK
  5. NEXIUM [Concomitant]
     Dosage: UNK
  6. PRISTIQ [Concomitant]
     Dosage: UNK
  7. TOPIRAMATE [Concomitant]
     Dosage: UNK
  8. CLARITIN [Concomitant]
     Dosage: UNK
  9. LYRICA [Concomitant]
     Dosage: UNK
  10. LOPRESSOR [Concomitant]
     Dosage: UNK
  11. ZANTAC [Concomitant]
     Dosage: UNK
  12. MANNITOL [Concomitant]
     Dosage: UNK

REACTIONS (19)
  - Grand mal convulsion [None]
  - Intracranial venous sinus thrombosis [Recovered/Resolved]
  - Cerebrovascular accident [None]
  - Cerebral haemorrhage [Recovered/Resolved]
  - Brain oedema [None]
  - Headache [None]
  - Clumsiness [None]
  - Nausea [None]
  - Vomiting [None]
  - Hypoaesthesia [None]
  - Aphasia [None]
  - Hemiparesis [None]
  - Cognitive disorder [None]
  - Gait disturbance [None]
  - Periarthritis [None]
  - Brain contusion [None]
  - Depression [None]
  - Anxiety [None]
  - Agitation [None]
